FAERS Safety Report 9914970 (Version 3)
Quarter: 2014Q1

REPORT INFORMATION
  Report Type: Spontaneous
  Country: US (occurrence: US)
  Receive Date: 20140220
  Receipt Date: 20140226
  Transmission Date: 20141002
  Serious: Yes (Hospitalization, Other)
  Sender: FDA-Public Use
  Company Number: US-GILEAD-2014-0094790

PATIENT
  Sex: Female

DRUGS (16)
  1. LETAIRIS [Suspect]
     Indication: PRODUCT USED FOR UNKNOWN INDICATION
     Dosage: 5 MG, UNK
     Route: 065
     Dates: start: 20130815
  2. LETAIRIS [Suspect]
     Dates: start: 20130815, end: 20140127
  3. LASIX /00032601/ [Suspect]
     Indication: PRODUCT USED FOR UNKNOWN INDICATION
     Route: 065
  4. METFORMIN [Concomitant]
  5. AMLODIPINE [Concomitant]
  6. PRAVASTATIN [Concomitant]
  7. PAXIL                              /00500401/ [Concomitant]
  8. FUROSEMIDE [Concomitant]
  9. LOSARTAN [Concomitant]
  10. RANITIDINE [Concomitant]
  11. MULTIVITAMINS [Concomitant]
  12. VITAMIN D3 [Concomitant]
  13. FISH OIL [Concomitant]
  14. COD LIVER OIL [Concomitant]
  15. GARLIC                             /01570501/ [Concomitant]
  16. OXYBUTYNIN CHLORIDE [Concomitant]

REACTIONS (3)
  - Cardiac failure congestive [Unknown]
  - Unevaluable event [Recovered/Resolved]
  - Dyspnoea [Unknown]
